FAERS Safety Report 9334500 (Version 2)
Quarter: 2013Q4

REPORT INFORMATION
  Report Type: Spontaneous
  Country: US (occurrence: US)
  Receive Date: 20130606
  Receipt Date: 20131008
  Transmission Date: 20140711
  Serious: No
  Sender: FDA-Public Use
  Company Number: US-AMGEN-USASP2013028298

PATIENT
  Age: 56 Year
  Sex: Female
  Weight: 74.38 kg

DRUGS (7)
  1. PROLIA [Suspect]
     Indication: OSTEOPOROSIS
     Dosage: 60 MG, Q6MO
     Route: 058
     Dates: start: 20120820
  2. PROLIA [Suspect]
  3. FISH OIL [Concomitant]
     Dosage: 500 G, UNK
     Route: 048
  4. ACETYLSALICYLIC ACID [Concomitant]
     Dosage: 81 MG, UNK
     Route: 048
  5. LISINOPRIL [Concomitant]
     Dosage: 7.5 MG, UNK
     Route: 048
  6. ESTRONE [Concomitant]
     Dosage: 1 G, UNK
     Route: 067
     Dates: start: 20120618
  7. ESTROVEN [Concomitant]
     Route: 048

REACTIONS (2)
  - Rash pruritic [Recovering/Resolving]
  - Rash macular [Unknown]
